FAERS Safety Report 4275018-2 (Version None)
Quarter: 2004Q1

REPORT INFORMATION
  Report Type: 
  Country: None (occurrence: None)
  Receive Date: 20040116
  Receipt Date: 20040108
  Transmission Date: 20041129
  Serious: Yes (Hospitalization)
  Sender: FDA-Public Use
  Company Number: EMADSS2003003756

PATIENT
  Age: 54 Year
  Sex: Female

DRUGS (9)
  1. REMICADE [Suspect]
     Indication: RHEUMATOID ARTHRITIS
     Dosage: DRUG NOT ADMINISTERED
  2. METHOTREXATE [Suspect]
     Indication: RHEUMATOID ARTHRITIS
     Dosage: 10 MG
     Dates: start: 20011127
  3. FOLIC ACID [Concomitant]
  4. SULFASALAZINE [Concomitant]
  5. PREDNISONE [Concomitant]
  6. DICLOFENAC SODIUM [Concomitant]
  7. PANTOZOL (PANTOPRAZOLE SODIUM) [Concomitant]
  8. DEVARON (COLECALCIFEROL) [Concomitant]
  9. NEORAL [Concomitant]

REACTIONS (2)
  - BREAST CANCER [None]
  - IMPAIRED HEALING [None]
